FAERS Safety Report 24342606 (Version 1)
Quarter: 2024Q3

REPORT INFORMATION
  Report Type: Spontaneous
  Country: CN (occurrence: CN)
  Receive Date: 20240920
  Receipt Date: 20240920
  Transmission Date: 20241016
  Serious: Yes (Hospitalization)
  Sender: DR REDDYS
  Company Number: None

PATIENT
  Age: 64 Year
  Sex: Female

DRUGS (4)
  1. OLANZAPINE [Suspect]
     Active Substance: OLANZAPINE
     Indication: Schizophrenia
     Dosage: 7 MG, ONCE DAILY
     Route: 048
     Dates: start: 20240619, end: 20240729
  2. OLANZAPINE [Suspect]
     Active Substance: OLANZAPINE
     Dosage: 2.5 MG, QD
     Route: 048
     Dates: start: 20240729, end: 20240806
  3. BLONANSERIN [Suspect]
     Active Substance: BLONANSERIN
     Indication: Schizophrenia
     Dosage: 4MG,QD
     Route: 048
     Dates: start: 20240809, end: 20240903
  4. Tianmeng Oral Liquid [Concomitant]
     Indication: Sleep disorder
     Dosage: 10ML, TWICE DAILY
     Route: 048
     Dates: start: 20240619, end: 20240903

REACTIONS (1)
  - White blood cell count decreased [Recovering/Resolving]

NARRATIVE: CASE EVENT DATE: 20240830
